FAERS Safety Report 4641253-4 (Version None)
Quarter: 2005Q2

REPORT INFORMATION
  Report Type: 
  Country: None (occurrence: None)
  Receive Date: 20050421
  Receipt Date: 20050411
  Transmission Date: 20051028
  Serious: Yes (Hospitalization)
  Sender: FDA-Public Use
  Company Number: FR-JNJFOC-20050404107

PATIENT
  Age: 64 Year
  Sex: Male

DRUGS (4)
  1. TOPALGIC [Suspect]
     Indication: PAIN
     Route: 049
     Dates: start: 20050222, end: 20050222
  2. TOPALGIC [Suspect]
     Indication: RHEUMATOID ARTHRITIS
     Route: 049
     Dates: start: 20050222, end: 20050222
  3. CORTANCYL [Concomitant]
     Indication: RHEUMATOID ARTHRITIS
     Route: 049
  4. TRIATEC [Concomitant]
     Indication: HYPERTENSION
     Route: 049

REACTIONS (3)
  - CEREBROVASCULAR ACCIDENT [None]
  - ELECTROCARDIOGRAM REPOLARISATION ABNORMALITY [None]
  - HEART RATE DECREASED [None]
